FAERS Safety Report 5271065-2 (Version None)
Quarter: 2007Q1

REPORT INFORMATION
  Report Type: 
  Country: None (occurrence: None)
  Receive Date: 20070321
  Receipt Date: 20070321
  Transmission Date: 20070707
  Serious: Yes (Other)
  Sender: FDA-Public Use
  Company Number: 2007-001227

PATIENT
  Age: 46 Year
  Sex: Male
  Weight: 99 kg

DRUGS (21)
  1. FLOLAN [Suspect]
     Indication: PULMONARY HYPERTENSION
     Dosage: 16NGKM UNKNOWN
     Route: 042
     Dates: start: 20060606
  2. INFUSION FLUID [Concomitant]
  3. FOLIC ACID [Concomitant]
     Route: 048
  4. METHADONE HCL [Concomitant]
     Route: 048
  5. VIREAD [Concomitant]
     Dosage: 300MG PER DAY
     Route: 048
  6. KALETRA [Concomitant]
     Dosage: 1TAB TWICE PER DAY
     Route: 048
  7. OXYCONTIN [Concomitant]
     Dosage: 80MG FOUR TIMES PER DAY
     Route: 048
  8. PROMETHAZINE [Concomitant]
     Dosage: 5MG AS REQUIRED
     Route: 048
  9. LASIX [Concomitant]
     Dosage: 40MG PER DAY
     Route: 048
  10. ALBUTEROL [Concomitant]
     Dosage: 2PUFF TWICE PER DAY
     Route: 055
  11. ALPRAZOLAM [Concomitant]
     Dosage: 1.5MG FOUR TIMES PER DAY
     Route: 048
  12. THIAMINE [Concomitant]
     Dosage: 100MG PER DAY
     Route: 048
  13. VITAMIN B COMPLEX CAP [Concomitant]
     Dosage: 1CAP PER DAY
     Route: 048
  14. CAPSAICIN [Concomitant]
     Route: 061
  15. COLACE [Concomitant]
     Dosage: 100MG TWICE PER DAY
     Route: 048
  16. CLONIDINE [Concomitant]
     Dosage: .1MG PER DAY
     Route: 048
  17. OXYGEN [Concomitant]
     Dosage: 2L CONTINUOUS
  18. ZIDOVUDINE [Concomitant]
     Dosage: 300MG TWICE PER DAY
     Route: 048
  19. GABAPENTIN [Concomitant]
     Route: 048
  20. PERCOCET [Concomitant]
     Dosage: 4TAB AS REQUIRED
     Route: 048
  21. SODIUM CHLORIDE [Concomitant]

REACTIONS (2)
  - CATHETER RELATED COMPLICATION [None]
  - PHARMACEUTICAL PRODUCT COMPLAINT [None]
